FAERS Safety Report 7733207-6 (Version None)
Quarter: 2011Q3

REPORT INFORMATION
  Report Type: 
  Country: None (occurrence: None)
  Receive Date: 20110907
  Receipt Date: 20110906
  Transmission Date: 20111222
  Serious: Yes (Death)
  Sender: FDA-Public Use
  Company Number: NZ-B.I. PHARMACEUTICALS,INC./RIDGEFIELD-2011-AU-01182AU

PATIENT
  Age: 52 Year
  Sex: Male

DRUGS (3)
  1. BRICANYL [Concomitant]
  2. SPIRIVA [Suspect]
  3. SYMBICORT [Concomitant]

REACTIONS (2)
  - CONDITION AGGRAVATED [None]
  - DEATH [None]
